FAERS Safety Report 5307008-2 (Version None)
Quarter: 2007Q2

REPORT INFORMATION
  Report Type: 
  Country: None (occurrence: None)
  Receive Date: 20070419
  Receipt Date: 20070417
  Transmission Date: 20071010
  Serious: Yes (Death, Hospitalization)
  Sender: FDA-Public Use
  Company Number: TCI2007A01762

PATIENT
  Age: 62 Year
  Sex: Male

DRUGS (6)
  1. LANSOPRAZOLE [Suspect]
     Indication: EROSIVE DUODENITIS
     Dosage: 30 MG (30 MG, 1 IN 1 D) PER ORAL
     Route: 048
     Dates: start: 20061220
  2. LANSOPRAZOLE [Suspect]
     Indication: GASTRITIS EROSIVE
     Dosage: 30 MG (30 MG, 1 IN 1 D) PER ORAL
     Route: 048
     Dates: start: 20061220
  3. LANSOPRAZOLE [Suspect]
     Indication: REFLUX OESOPHAGITIS
     Dosage: 30 MG (30 MG, 1 IN 1 D) PER ORAL
     Route: 048
     Dates: start: 20061220
  4. RABEPRAZOLE SODIUM [Suspect]
     Indication: EROSIVE DUODENITIS
     Dosage: PER ORAL
     Route: 048
     Dates: start: 20070201
  5. RABEPRAZOLE SODIUM [Suspect]
     Indication: GASTRITIS EROSIVE
     Dosage: PER ORAL
     Route: 048
     Dates: start: 20070201
  6. RABEPRAZOLE SODIUM [Suspect]
     Indication: REFLUX OESOPHAGITIS
     Dosage: PER ORAL
     Route: 048
     Dates: start: 20070201

REACTIONS (8)
  - ABDOMINAL PAIN UPPER [None]
  - CYTOMEGALOVIRUS ENTEROCOLITIS [None]
  - INFECTION IN AN IMMUNOCOMPROMISED HOST [None]
  - INTERSTITIAL LUNG DISEASE [None]
  - NASOPHARYNGITIS [None]
  - PNEUMOCYSTIS JIROVECI PNEUMONIA [None]
  - RASH [None]
  - SMALL INTESTINAL PERFORATION [None]
